FAERS Safety Report 5599869-7 (Version None)
Quarter: 2008Q1

REPORT INFORMATION
  Report Type: 
  Country: None (occurrence: None)
  Receive Date: 20080117
  Receipt Date: 20080105
  Transmission Date: 20080703
  Serious: Yes (Death)
  Sender: FDA-Public Use
  Company Number: ADE2008-0100

PATIENT
  Age: 75 Year
  Sex: Male

DRUGS (4)
  1. AMLODIPINE BESYLATE [Suspect]
     Dosage: 1000MG
  2. ASPIRIN [Suspect]
  3. PARACETAMOL [Suspect]
  4. SOTALOL HYDROCHLORIDE [Suspect]

REACTIONS (1)
  - DEATH [None]
